FAERS Safety Report 8949479 (Version 1)
Quarter: 2012Q4

REPORT INFORMATION
  Report Type: 
  Country: US (occurrence: US)
  Receive Date: 20121206
  Receipt Date: 20121206
  Transmission Date: 20130627
  Serious: Yes (Other)
  Sender: FDA-Public Use
  Company Number: US-PFIZER INC-2012306020

PATIENT
  Age: 50 Year
  Sex: Female
  Weight: 66.67 kg

DRUGS (5)
  1. LYRICA [Suspect]
     Indication: FOOT PAIN
     Dosage: 75 mg, 1x/day
     Route: 048
     Dates: start: 201211, end: 201211
  2. LYRICA [Suspect]
     Dosage: 75 mg, 2x/day
     Route: 048
     Dates: start: 201211
  3. CYMBALTA [Concomitant]
     Dosage: UNK
  4. ASPIRIN [Concomitant]
     Dosage: UNK
  5. METFORMIN [Concomitant]
     Dosage: UNK

REACTIONS (7)
  - Swollen tongue [Not Recovered/Not Resolved]
  - Lip blister [Not Recovered/Not Resolved]
  - Glossodynia [Not Recovered/Not Resolved]
  - Incorrect dose administered [Unknown]
  - Somnolence [Not Recovered/Not Resolved]
  - Lip disorder [Not Recovered/Not Resolved]
  - Tooth disorder [Not Recovered/Not Resolved]
